FAERS Safety Report 23255840 (Version 1)
Quarter: 2023Q4

REPORT INFORMATION
  Report Type: Spontaneous
  Country: US (occurrence: US)
  Receive Date: 20231204
  Receipt Date: 20231204
  Transmission Date: 20240110
  Serious: No
  Sender: FDA-Public Use
  Company Number: RDH2022-043

PATIENT
  Age: 74 Year
  Sex: Male

DRUGS (1)
  1. TALICIA [Suspect]
     Active Substance: AMOXICILLIN\OMEPRAZOLE MAGNESIUM\RIFABUTIN
     Indication: Bacterial infection
     Dosage: FOUR CAPSULES EVERY 8 HOURS FOR 14-DAYS, BUT THE PATIENT TOOK IT ONLY FOR 2 DAYS
     Route: 048
     Dates: start: 20210422, end: 20210423

REACTIONS (2)
  - Nausea [Recovered/Resolved]
  - Vomiting [Recovered/Resolved]

NARRATIVE: CASE EVENT DATE: 20210422
